FAERS Safety Report 12728482 (Version 1)
Quarter: 2016Q3

REPORT INFORMATION
  Report Type: Report from Study
  Country: US (occurrence: US)
  Receive Date: 20160909
  Receipt Date: 20160909
  Transmission Date: 20161109
  Serious: Yes (Death, Other)
  Sender: FDA-Public Use
  Company Number: US-BEH-2016073068

PATIENT
  Age: 29 Year
  Sex: Female

DRUGS (2)
  1. CORTICOSTEROIDS [Suspect]
     Active Substance: CORTICOSTEROID NOS
     Route: 065
  2. HUMAN IMMUNOGLOBULIN IV (GENERIC) [Suspect]
     Active Substance: HUMAN IMMUNOGLOBULIN G
     Indication: ACUTE DISSEMINATED ENCEPHALOMYELITIS
     Route: 042

REACTIONS (1)
  - Drug ineffective for unapproved indication [Fatal]
